FAERS Safety Report 14155399 (Version 1)
Quarter: 2017Q4

REPORT INFORMATION
  Report Type: Report from Study
  Country: None (occurrence: NL)
  Receive Date: 20171103
  Receipt Date: 20171103
  Transmission Date: 20180321
  Serious: Yes (Death)
  Sender: FDA-Public Use
  Company Number: NL-ABBVIE-17K-114-2149534-00

PATIENT
  Age: 91 Year
  Sex: Male

DRUGS (1)
  1. DUODOPA [Suspect]
     Active Substance: CARBIDOPA\LEVODOPA
     Indication: PARKINSON^S DISEASE
     Dosage: MD 11.5, CD 4.8, ED 2.5
     Route: 050
     Dates: start: 20170110

REACTIONS (2)
  - Parkinson^s disease [Fatal]
  - Death [Fatal]

NARRATIVE: CASE EVENT DATE: 20171028
